FAERS Safety Report 20788339 (Version 1)
Quarter: 2022Q2

REPORT INFORMATION
  Report Type: Spontaneous
  Country: CA (occurrence: CA)
  Receive Date: 20220505
  Receipt Date: 20220505
  Transmission Date: 20220720
  Serious: Yes (Other)
  Sender: FDA-Public Use
  Company Number: CA-TEVA-2022-CA-2032348

PATIENT
  Sex: Female

DRUGS (2)
  1. MORPHINE SULFATE [Suspect]
     Active Substance: MORPHINE SULFATE
     Indication: Pain
     Route: 065
  2. OXYCONTIN [Suspect]
     Active Substance: OXYCODONE HYDROCHLORIDE
     Indication: Pain
     Route: 048

REACTIONS (10)
  - Cerebrovascular accident [Unknown]
  - Delusion [Unknown]
  - Drug dependence [Unknown]
  - Epigastric discomfort [Unknown]
  - Fatigue [Unknown]
  - Irritability [Unknown]
  - Liver disorder [Unknown]
  - Renal failure [Unknown]
  - Thinking abnormal [Unknown]
  - Toxicity to various agents [Unknown]
